FAERS Safety Report 17570195 (Version 1)
Quarter: 2020Q1

REPORT INFORMATION
  Report Type: Spontaneous
  Country: US (occurrence: US)
  Receive Date: 20200316
  Receipt Date: 20200316
  Transmission Date: 20200409
  Serious: No
  Sender: FDA-Public Use
  Company Number: None

PATIENT
  Sex: Female

DRUGS (8)
  1. OMEPRAZOLE. [Concomitant]
     Active Substance: OMEPRAZOLE
  2. ESTRADIOL. [Concomitant]
     Active Substance: ESTRADIOL
  3. OXYBUTININ [Concomitant]
     Active Substance: OXYBUTYNIN
  4. PAROXETINE. [Concomitant]
     Active Substance: PAROXETINE
  5. AMOXICILLIN. [Concomitant]
     Active Substance: AMOXICILLIN
  6. CLARITHROMYCIN. [Concomitant]
     Active Substance: CLARITHROMYCIN
  7. OCALIVA [Suspect]
     Active Substance: OBETICHOLIC ACID
     Indication: PRIMARY BILIARY CHOLANGITIS
     Route: 048
     Dates: start: 20200123
  8. URSODIOL. [Concomitant]
     Active Substance: URSODIOL

REACTIONS (2)
  - Unevaluable event [None]
  - Headache [None]
